FAERS Safety Report 24941904 (Version 1)
Quarter: 2025Q1

REPORT INFORMATION
  Report Type: Spontaneous
  Country: US (occurrence: None)
  Receive Date: 20250206
  Receipt Date: 20250206
  Transmission Date: 20250409
  Serious: Yes (Other)
  Sender: FDA-CTU
  Company Number: None

PATIENT
  Age: 75 Year
  Sex: Female
  Weight: 80.5 kg

DRUGS (5)
  1. INFED [Suspect]
     Active Substance: IRON DEXTRAN
     Indication: Iron deficiency anaemia
     Route: 042
     Dates: start: 20250206, end: 20250206
  2. Atorvastatin 20 mg PO daily [Concomitant]
  3. Flaxseen oil 1,000 mg PO daily [Concomitant]
  4. Metroprolol 25 mg PO twice daily [Concomitant]
  5. Valsartan 160-hydrochlorothiazide 25 PO daily [Concomitant]

REACTIONS (6)
  - Dyspnoea [None]
  - Chest pain [None]
  - Back pain [None]
  - Throat irritation [None]
  - Flushing [None]
  - Pruritus [None]

NARRATIVE: CASE EVENT DATE: 20250206
